FAERS Safety Report 16325666 (Version 2)
Quarter: 2020Q4

REPORT INFORMATION
  Report Type: Spontaneous
  Country: US (occurrence: US)
  Receive Date: 20190517
  Receipt Date: 20201124
  Transmission Date: 20210113
  Serious: Yes (Other)
  Sender: FDA-Public Use
  Company Number: US-JNJFOC-20190514826

PATIENT
  Sex: Male

DRUGS (1)
  1. SIMPONI ARIA [Suspect]
     Active Substance: GOLIMUMAB
     Indication: PSORIATIC ARTHROPATHY
     Route: 042
     Dates: start: 201902

REACTIONS (3)
  - Pain in extremity [Not Recovered/Not Resolved]
  - Furuncle [Not Recovered/Not Resolved]
  - Nail infection [Unknown]

NARRATIVE: CASE EVENT DATE: 2019
